FAERS Safety Report 10023962 (Version 2)
Quarter: 2014Q2

REPORT INFORMATION
  Report Type: Report from Study
  Country: FR (occurrence: FR)
  Receive Date: 20140320
  Receipt Date: 20140408
  Transmission Date: 20141212
  Serious: Yes (Death, Hospitalization, Other)
  Sender: FDA-Public Use
  Company Number: FR-ASTELLAS-2014EU002427

PATIENT
  Age: 61 Year
  Sex: Female

DRUGS (1)
  1. MYCAMINE [Suspect]
     Dosage: 50 MG, UID/QD
     Route: 042
     Dates: start: 20131115, end: 20131210

REACTIONS (7)
  - Bronchopulmonary aspergillosis [Fatal]
  - Respiratory syncytial virus infection [Fatal]
  - Gastroenteritis viral [Not Recovered/Not Resolved]
  - Human herpesvirus 6 infection [Not Recovered/Not Resolved]
  - Renal failure acute [Unknown]
  - Pseudomonas infection [Unknown]
  - Device related infection [Unknown]
